FAERS Safety Report 5767876-7 (Version None)
Quarter: 2008Q2

REPORT INFORMATION
  Report Type: 
  Country: None (occurrence: None)
  Receive Date: 20080612
  Receipt Date: 20080602
  Transmission Date: 20081010
  Serious: Yes (Other)
  Sender: FDA-Public Use
  Company Number: CA-ROCHE-568603

PATIENT
  Sex: Female

DRUGS (3)
  1. VALIUM [Suspect]
     Route: 048
     Dates: start: 19980101
  2. VALIUM [Suspect]
     Route: 048
     Dates: end: 20080501
  3. VALIUM [Suspect]
     Dosage: AS NEEDED.
     Route: 048

REACTIONS (9)
  - DYSPNOEA [None]
  - FATIGUE [None]
  - HEART RATE INCREASED [None]
  - HEART RATE IRREGULAR [None]
  - OEDEMA PERIPHERAL [None]
  - PNEUMONIA [None]
  - SLEEP APNOEA SYNDROME [None]
  - SLEEP ATTACKS [None]
  - TACHYCARDIA [None]
